FAERS Safety Report 7250615-0 (Version None)
Quarter: 2011Q1

REPORT INFORMATION
  Report Type: 
  Country: None (occurrence: None)
  Receive Date: 20110121
  Receipt Date: 20110121
  Transmission Date: 20110831
  Serious: No
  Sender: FDA-Public Use
  Company Number: None

PATIENT
  Age: 49 Year
  Sex: Female
  Weight: 65.7716 kg

DRUGS (1)
  1. SUMATRIPTAN 100MG DR. REDDY'S [Suspect]
     Indication: MIGRAINE
     Dosage: 100 MG EVERY 6 HOURS
     Dates: start: 20110119, end: 20110120

REACTIONS (2)
  - PRODUCT SUBSTITUTION ISSUE [None]
  - DRUG INEFFECTIVE [None]
